FAERS Safety Report 7084394-7 (Version None)
Quarter: 2010Q4

REPORT INFORMATION
  Report Type: 
  Country: None (occurrence: None)
  Receive Date: 20101104
  Receipt Date: 20101025
  Transmission Date: 20110411
  Serious: Yes (Other)
  Sender: FDA-Public Use
  Company Number: US-PFIZER INC-2010140077

PATIENT
  Sex: Female

DRUGS (6)
  1. TENORMIN [Suspect]
     Indication: HYPERTENSION
     Dosage: 25 MG, 1X/DAY
     Route: 048
     Dates: start: 19990901
  2. TENORMIN [Suspect]
     Dosage: UNK
     Route: 048
  3. ATACAND [Suspect]
     Dosage: 8 MG, 1X/DAY
     Route: 048
     Dates: start: 19990901
  4. HYDROCHLOROTHIAZIDE [Concomitant]
     Dosage: 12.5 MG, 1X/DAY
     Route: 048
  5. ASPIRIN [Concomitant]
     Dosage: UNK
  6. VALIUM [Concomitant]
     Indication: ANXIETY
     Dosage: 2 MG, AS NEEDED

REACTIONS (12)
  - BLOOD POTASSIUM INCREASED [None]
  - BLOOD PRESSURE DECREASED [None]
  - CATARACT [None]
  - COUGH [None]
  - DRUG INEFFECTIVE [None]
  - FATIGUE [None]
  - HEART RATE DECREASED [None]
  - LIBIDO DECREASED [None]
  - NEUROPATHY PERIPHERAL [None]
  - TRANSIENT ISCHAEMIC ATTACK [None]
  - WEIGHT INCREASED [None]
  - WRONG TECHNIQUE IN DRUG USAGE PROCESS [None]
